FAERS Safety Report 7914109-9 (Version None)
Quarter: 2011Q4

REPORT INFORMATION
  Report Type: 
  Country: None (occurrence: None)
  Receive Date: 20111110
  Receipt Date: 20091223
  Transmission Date: 20120403
  Serious: Yes (Hospitalization, Other)
  Sender: FDA-Public Use
  Company Number: AUR=APL-2009-01195

PATIENT
  Age: 30 Year
  Sex: Male

DRUGS (3)
  1. INTERFERON ALFA [Suspect]
     Indication: HEPATITIS C
     Dosage: 135 MCG, 1 WK, SUBCUTANEOUS
     Route: 058
  2. RIBAVIRIN [Suspect]
     Indication: HEPATITIS C
     Dosage: 800 MG, 1 IN 1 D
  3. AMISULPRIDE (AMISULPRIDE) [Suspect]
     Indication: PSYCHOTIC DISORDER
     Dosage: 1000 MG, 1 IN 1 D

REACTIONS (11)
  - FEAR [None]
  - SOCIAL AVOIDANT BEHAVIOUR [None]
  - HALLUCINATION, AUDITORY [None]
  - AGGRESSION [None]
  - DRUG EFFECT DECREASED [None]
  - PERSECUTORY DELUSION [None]
  - IMPAIRED WORK ABILITY [None]
  - DYSPHORIA [None]
  - LEUKOPENIA [None]
  - ACUTE PSYCHOSIS [None]
  - SUICIDE ATTEMPT [None]
